FAERS Safety Report 23059336 (Version 1)
Quarter: 2023Q4

REPORT INFORMATION
  Report Type: Report from Study
  Country: US (occurrence: US)
  Receive Date: 20231012
  Receipt Date: 20231012
  Transmission Date: 20240110
  Serious: Yes (Hospitalization)
  Sender: FDA-Public Use
  Company Number: US-ABBVIE-5445466

PATIENT
  Sex: Female

DRUGS (1)
  1. RINVOQ [Suspect]
     Active Substance: UPADACITINIB
     Indication: Eczema
     Dosage: STRENGTH: 15 MG?ER
     Route: 048
     Dates: start: 2020, end: 202309

REACTIONS (4)
  - Gastric ulcer [Unknown]
  - Tonsillar inflammation [Not Recovered/Not Resolved]
  - Cold sweat [Not Recovered/Not Resolved]
  - Pyrexia [Not Recovered/Not Resolved]

NARRATIVE: CASE EVENT DATE: 20230101
